FAERS Safety Report 7067451-0 (Version None)
Quarter: 2010Q4

REPORT INFORMATION
  Report Type: 
  Country: None (occurrence: None)
  Receive Date: 20101028
  Receipt Date: 20100115
  Transmission Date: 20110411
  Serious: No
  Sender: FDA-Public Use
  Company Number: US-PFIZER INC-2010009866

PATIENT
  Sex: Female
  Weight: 51.701 kg

DRUGS (3)
  1. SINEQUAN [Suspect]
     Route: 048
  2. ZOLOFT [Suspect]
     Route: 048
     Dates: start: 19950101, end: 19950101
  3. DOXEPIN HCL [Suspect]
     Route: 048
     Dates: end: 19950101

REACTIONS (1)
  - HEADACHE [None]
